FAERS Safety Report 6296438-0 (Version None)
Quarter: 2009Q3

REPORT INFORMATION
  Report Type: 
  Country: None (occurrence: None)
  Receive Date: 20090804
  Receipt Date: 20090731
  Transmission Date: 20100115
  Serious: Yes (Hospitalization)
  Sender: FDA-Public Use
  Company Number: JP-EISAI INC.-E2020-04902-SPO-JP

PATIENT
  Age: 82 Year
  Sex: Male

DRUGS (7)
  1. ARICEPT [Suspect]
     Indication: DEMENTIA ALZHEIMER'S TYPE
     Route: 048
     Dates: start: 20090618, end: 20090618
  2. PLETAL [Concomitant]
     Route: 048
  3. SELBEX [Concomitant]
     Route: 048
  4. MICARDIS [Concomitant]
     Route: 048
  5. ALLOZYM [Concomitant]
     Route: 048
  6. FUROSEMIDE [Concomitant]
     Route: 048
  7. ANTIPSYCHOTIC DRUGS [Concomitant]

REACTIONS (1)
  - COMA [None]
